FAERS Safety Report 9522004 (Version 1)
Quarter: 2013Q3

REPORT INFORMATION
  Report Type: Spontaneous
  Country: DE (occurrence: None)
  Receive Date: 20130911
  Receipt Date: 20130911
  Transmission Date: 20140515
  Serious: Yes (Congenital Anomaly)
  Sender: FDA-Public Use
  Company Number: 2013PL000141

PATIENT
  Sex: 0

DRUGS (15)
  1. ALLOPURINOL [Suspect]
     Indication: HYPERURICAEMIA
     Route: 064
  2. RAMIPRIL [Concomitant]
  3. METOPROLOL [Concomitant]
  4. ALPHA-METHYLDOPA [Concomitant]
  5. HYDROCHLOROTHIAZIDE [Concomitant]
  6. AMILODIPINE [Concomitant]
  7. SIMVASTATIN [Concomitant]
  8. METFORMIN [Concomitant]
  9. VENLAFAXIN [Concomitant]
  10. TILIDINE [Concomitant]
  11. NALOXONE [Concomitant]
  12. PARACETAMOL [Concomitant]
  13. ASA [Concomitant]
  14. INSULIN [Concomitant]
  15. INSULIN LISPRO [Concomitant]

REACTIONS (3)
  - Atrial septal defect [None]
  - Pulmonary artery stenosis [None]
  - Maternal drugs affecting foetus [None]
